FAERS Safety Report 5047731-0 (Version None)
Quarter: 2006Q3

REPORT INFORMATION
  Report Type: 
  Country: None (occurrence: None)
  Receive Date: 20060710
  Receipt Date: 20060710
  Transmission Date: 20061208
  Serious: Yes (Other)
  Sender: FDA-Public Use
  Company Number: None

PATIENT
  Sex: Male
  Weight: 81.1939 kg

DRUGS (4)
  1. CEFEPIME [Suspect]
     Indication: ESCHERICHIA SEPSIS
     Dosage: 2GM  Q12H  IVPB
     Route: 042
     Dates: start: 20060613, end: 20060615
  2. CEFEPIME [Suspect]
     Indication: UROSEPSIS
     Dosage: 2GM  Q12H  IVPB
     Route: 042
     Dates: start: 20060613, end: 20060615
  3. CEFEPIME [Suspect]
     Indication: ESCHERICHIA SEPSIS
     Dosage: 2GM  Q12H  IVPB
     Route: 042
     Dates: start: 20060615
  4. CEFEPIME [Suspect]
     Indication: UROSEPSIS
     Dosage: 2GM  Q12H  IVPB
     Route: 042
     Dates: start: 20060615

REACTIONS (3)
  - BLISTER [None]
  - PRURITUS [None]
  - RASH [None]
